FAERS Safety Report 14649239 (Version 1)
Quarter: 2018Q1

REPORT INFORMATION
  Report Type: Spontaneous
  Country: GR (occurrence: GR)
  Receive Date: 20180316
  Receipt Date: 20180316
  Transmission Date: 20180509
  Serious: Yes (Hospitalization, Other)
  Sender: FDA-Public Use
  Company Number: GR-ELI_LILLY_AND_COMPANY-GR201803002737

PATIENT
  Sex: Male

DRUGS (4)
  1. LOBIVON [Suspect]
     Active Substance: NEBIVOLOL HYDROCHLORIDE
     Indication: HYPERTENSION
     Dosage: UNK UNK, UNKNOWN
     Route: 065
     Dates: end: 2017
  2. TADALAFIL [Suspect]
     Active Substance: TADALAFIL
     Dosage: 20 MG, DAILY
     Route: 065
     Dates: start: 20180101
  3. CO-DIOVAN [Suspect]
     Active Substance: HYDROCHLOROTHIAZIDE\VALSARTAN
     Indication: HYPERTENSION
     Dosage: UNK, UNKNOWN
     Route: 065
  4. TADALAFIL [Suspect]
     Active Substance: TADALAFIL
     Indication: PRODUCT USED FOR UNKNOWN INDICATION
     Dosage: 10 MG, TWICE IN 48 HOURS
     Route: 065

REACTIONS (10)
  - Cold sweat [Unknown]
  - Loss of consciousness [Unknown]
  - Muscle contracture [Unknown]
  - Wrong technique in product usage process [Unknown]
  - Dizziness [Unknown]
  - Hyperhidrosis [Unknown]
  - Syncope [Unknown]
  - Pain [Unknown]
  - Arrhythmia [Unknown]
  - Malaise [Unknown]

NARRATIVE: CASE EVENT DATE: 20180101
